FAERS Safety Report 8071554 (Version 2)
Quarter: 2018Q4

REPORT INFORMATION
  Report Type: Spontaneous
  Country: DE (occurrence: DE)
  Receive Date: 20110805
  Receipt Date: 20181009
  Transmission Date: 20190205
  Serious: Yes (Hospitalization)
  Sender: FDA-Public Use
  Company Number: PHHY2011DE69533

PATIENT
  Age: 47 Year
  Sex: Female

DRUGS (2)
  1. DOXAZOSIN [Suspect]
     Active Substance: DOXAZOSIN\DOXAZOSIN MESYLATE
     Indication: ADENOMA BENIGN
     Dosage: UNK
     Route: 065
  2. VERAPAMIL [Suspect]
     Active Substance: VERAPAMIL HYDROCHLORIDE
     Indication: ADENOMA BENIGN
     Dosage: UNK
     Route: 065

REACTIONS (11)
  - Headache [Unknown]
  - Tremor [Unknown]
  - Palpitations [Unknown]
  - Oedema [Unknown]
  - Atrial fibrillation [Unknown]
  - Dyspnoea [Unknown]
  - Nocturia [Unknown]
  - Hypokalaemia [Unknown]
  - Ventricular tachyarrhythmia [Unknown]
  - Hypertension [Unknown]
  - Fatigue [Unknown]
